FAERS Safety Report 4595291-0 (Version None)
Quarter: 2005Q1

REPORT INFORMATION
  Report Type: 
  Country: None (occurrence: None)
  Receive Date: 20050223
  Receipt Date: 20050214
  Transmission Date: 20050727
  Serious: Yes (Hospitalization, Congenital Anomaly, Other)
  Sender: FDA-Public Use
  Company Number: 2005016854

PATIENT
  Sex: Male

DRUGS (2)
  1. DEPO-PROVERA [Suspect]
     Indication: HIGH RISK PREGNANCY
     Dosage: SEE IMAGE
     Dates: start: 19711228, end: 19711228
  2. DEPO-PROVERA [Suspect]
     Indication: HIGH RISK PREGNANCY
     Dosage: SEE IMAGE
     Dates: start: 19720203, end: 19720203

REACTIONS (5)
  - AZOTAEMIA [None]
  - CONGENITAL ANOMALY [None]
  - INFERTILITY MALE [None]
  - MATERNAL DRUGS AFFECTING FOETUS [None]
  - VESICOURETERIC REFLUX [None]
